FAERS Safety Report 25407429 (Version 2)
Quarter: 2025Q3

REPORT INFORMATION
  Report Type: Report from Study
  Country: US (occurrence: US)
  Receive Date: 20250606
  Receipt Date: 20250825
  Transmission Date: 20251021
  Serious: Yes (Life-Threatening, Hospitalization, Other)
  Sender: EISAI
  Company Number: US-Eisai-EC-2025-190640

PATIENT
  Age: 66 Year
  Sex: Female
  Weight: 88.9 kg

DRUGS (14)
  1. LECANEMAB [Suspect]
     Active Substance: LECANEMAB
     Indication: Dementia Alzheimer^s type
     Route: 042
     Dates: start: 20240129, end: 20240325
  2. LECANEMAB [Suspect]
     Active Substance: LECANEMAB
     Route: 042
     Dates: start: 20240422
  3. METFORMIN [Concomitant]
     Active Substance: METFORMIN HYDROCHLORIDE
     Route: 048
     Dates: start: 2005
  4. ATORVASTATIN [Concomitant]
     Active Substance: ATORVASTATIN
     Route: 048
     Dates: start: 2006
  5. LISINOPRIL [Concomitant]
     Active Substance: LISINOPRIL
     Route: 048
     Dates: start: 2006
  6. MODAFINIL [Concomitant]
     Active Substance: MODAFINIL
     Route: 048
     Dates: start: 2021
  7. SEMAGLUTIDE [Concomitant]
     Active Substance: SEMAGLUTIDE
     Route: 058
     Dates: start: 2022
  8. LANTUS SOLOSTAR [Concomitant]
     Active Substance: INSULIN GLARGINE
  9. ASPIRIN [Concomitant]
     Active Substance: ASPIRIN
  10. LACTOBACILLUS ACIDOPHILUS [Concomitant]
     Active Substance: LACTOBACILLUS ACIDOPHILUS
  11. CELEXA [Concomitant]
     Active Substance: CITALOPRAM HYDROBROMIDE
  12. METRONIDAZOLE [Concomitant]
     Active Substance: METRONIDAZOLE
  13. XALATAN [Concomitant]
     Active Substance: LATANOPROST
  14. PEPCID [Concomitant]
     Active Substance: FAMOTIDINE

REACTIONS (1)
  - Appendicitis [Recovered/Resolved]

NARRATIVE: CASE EVENT DATE: 20240403
